FAERS Safety Report 7941606-2 (Version None)
Quarter: 2011Q4

REPORT INFORMATION
  Report Type: 
  Country: None (occurrence: None)
  Receive Date: 20111122
  Receipt Date: 20111122
  Transmission Date: 20120403
  Serious: Yes (Hospitalization)
  Sender: FDA-Public Use
  Company Number: None

PATIENT
  Sex: Female
  Weight: 146.3 kg

DRUGS (6)
  1. ETOPOSIDE [Suspect]
     Dosage: 480 MG
  2. VINCRISTINE SULFATE [Suspect]
     Dosage: 4 MG
  3. CYCLOPHOSPHAMIDE [Suspect]
     Dosage: 1860 MG
  4. PREDNISONE TAB [Suspect]
     Dosage: 1500 MG
  5. DOXORUBICIN HCL [Suspect]
     Dosage: 100 MG
  6. RITUXIMAB (MOAB CDB8 ANTI CD20, CHIMERIC) [Suspect]
     Dosage: 930 MG

REACTIONS (2)
  - FACIAL PAIN [None]
  - HERPES ZOSTER [None]
